FAERS Safety Report 9859426 (Version 1)
Quarter: 2014Q1

REPORT INFORMATION
  Report Type: Spontaneous
  Country: US (occurrence: US)
  Receive Date: 20140131
  Receipt Date: 20140131
  Transmission Date: 20141002
  Serious: No
  Sender: FDA-Public Use
  Company Number: US-PFIZER INC-2014027328

PATIENT
  Age: 82 Year
  Sex: Female
  Weight: 63.49 kg

DRUGS (2)
  1. TOVIAZ [Suspect]
     Indication: HYPERTONIC BLADDER
     Dosage: UNK, 1X/DAY
     Route: 048
     Dates: start: 20140124
  2. AMOXICILLIN [Concomitant]
     Indication: SINUSITIS
     Dosage: UNK

REACTIONS (1)
  - Dry mouth [Unknown]
